FAERS Safety Report 12899062 (Version 1)
Quarter: 2016Q4

REPORT INFORMATION
  Report Type: Spontaneous
  Country: NL (occurrence: NL)
  Receive Date: 20161101
  Receipt Date: 20161101
  Transmission Date: 20170207
  Serious: Yes (Other)
  Sender: FDA-Public Use
  Company Number: NL-BRISTOL-MYERS SQUIBB COMPANY-BMS-2016-087878

PATIENT
  Age: 65 Year
  Sex: Male

DRUGS (5)
  1. CARBASALAATCALCIUM POEDER 100MG [Concomitant]
     Indication: PRODUCT USED FOR UNKNOWN INDICATION
     Dosage: 1 KEER PER DAG 1 STUK(S)
     Route: 048
     Dates: start: 20140404
  2. FORLAX POEDER VOOR DRANK SACHET 10G [Concomitant]
     Indication: PRODUCT USED FOR UNKNOWN INDICATION
     Dosage: 1 KEER PER DAG 1 STUK(S)
     Route: 048
     Dates: start: 20130411
  3. HYDROCHLOORTHIAZIDE TABLET 12,5MG [Concomitant]
     Active Substance: HYDROCHLOROTHIAZIDE
     Indication: PRODUCT USED FOR UNKNOWN INDICATION
     Route: 048
     Dates: start: 20141230
  4. LOSARTAN TABLET FO  25MG [Concomitant]
     Indication: PRODUCT USED FOR UNKNOWN INDICATION
     Dosage: 1 KEER PER DAG 1 STUK(S)
     Route: 048
     Dates: start: 20160201
  5. PRAVASTATIN SODIUM. [Suspect]
     Active Substance: PRAVASTATIN SODIUM
     Indication: CARDIOVASCULAR EVENT PROPHYLAXIS
     Dosage: 1 KEER PER DAG 1 STUK(S)
     Route: 048
     Dates: start: 20150127

REACTIONS (1)
  - Muscle rupture [Recovering/Resolving]

NARRATIVE: CASE EVENT DATE: 20161002
